FAERS Safety Report 9337904 (Version 1)
Quarter: 2013Q2

REPORT INFORMATION
  Report Type: Spontaneous
  Country: ES (occurrence: ES)
  Receive Date: 20130608
  Receipt Date: 20130608
  Transmission Date: 20140414
  Serious: Yes (Other)
  Sender: FDA-Public Use
  Company Number: ES-ROCHE-1233677

PATIENT
  Age: 47 Year
  Sex: Male

DRUGS (2)
  1. BEVACIZUMAB [Suspect]
     Indication: ANAPLASTIC ASTROCYTOMA
     Route: 065
  2. IRINOTECAN [Concomitant]
     Indication: ANAPLASTIC ASTROCYTOMA

REACTIONS (1)
  - Skin necrosis [Recovering/Resolving]
